FAERS Safety Report 5904304-2 (Version None)
Quarter: 2008Q4

REPORT INFORMATION
  Report Type: 
  Country: None (occurrence: None)
  Receive Date: 20081001
  Receipt Date: 20080723
  Transmission Date: 20090506
  Serious: No
  Sender: FDA-Public Use
  Company Number: US-BRISTOL-MYERS SQUIBB COMPANY-14281356

PATIENT
  Age: 58 Year
  Sex: Male

DRUGS (2)
  1. SPRYCEL [Suspect]
     Dosage: 1DF=STARTED WITH 70 MG BID, IN JAN07 HELD FOR 1WEEK,RESTARTED WITH 40MG BID
     Dates: start: 20061101
  2. GLEEVEC [Concomitant]
     Indication: CHRONIC MYELOID LEUKAEMIA
     Dates: start: 20060101, end: 20061101

REACTIONS (7)
  - DEPRESSION [None]
  - FATIGUE [None]
  - GYNAECOMASTIA [None]
  - PERIORBITAL OEDEMA [None]
  - RASH MACULO-PAPULAR [None]
  - URTICARIA [None]
  - WEIGHT DECREASED [None]
